FAERS Safety Report 6054165-9 (Version None)
Quarter: 2009Q1

REPORT INFORMATION
  Report Type: 
  Country: None (occurrence: None)
  Receive Date: 20090127
  Receipt Date: 20090122
  Transmission Date: 20090719
  Serious: Yes (Death, Hospitalization, Other)
  Sender: FDA-Public Use
  Company Number: DE-ABBOTT-09P-062-0499411-00

PATIENT
  Sex: Female
  Weight: 89 kg

DRUGS (6)
  1. HUMIRA [Suspect]
     Indication: RHEUMATOID ARTHRITIS
     Route: 058
     Dates: start: 20051001
  2. PREDNISOLONE [Concomitant]
     Indication: RHEUMATOID ARTHRITIS
     Route: 048
     Dates: start: 20050801
  3. MOXONIDIN [Concomitant]
     Indication: HYPERTENSION
     Route: 048
     Dates: start: 20071001
  4. BISOPROLOL [Concomitant]
     Indication: HYPERTENSION
     Route: 048
     Dates: start: 20071001, end: 20081227
  5. CANDESARTAN [Concomitant]
     Indication: HYPERTENSION
     Dosage: 2 X 1/2
     Route: 048
     Dates: start: 20071001
  6. LERCANIDIPIN [Concomitant]
     Indication: HYPERTENSION
     Dosage: 1-1/2 PER DAY
     Route: 048
     Dates: start: 20071001

REACTIONS (6)
  - ACUTE MYOCARDIAL INFARCTION [None]
  - ATRIOVENTRICULAR BLOCK COMPLETE [None]
  - CARDIOGENIC SHOCK [None]
  - HYPOVOLAEMIC SHOCK [None]
  - LEFT VENTRICULAR FAILURE [None]
  - RESPIRATORY FAILURE [None]
